FAERS Safety Report 4366127-8 (Version None)
Quarter: 2004Q2

REPORT INFORMATION
  Report Type: 
  Country: None (occurrence: None)
  Receive Date: 20040524
  Receipt Date: 20040507
  Transmission Date: 20050107
  Serious: Yes (Other)
  Sender: FDA-Public Use
  Company Number: S04-FRA-02084-01

PATIENT
  Age: 88 Year
  Sex: Female

DRUGS (5)
  1. EBIXA (MEMANTINE) [Suspect]
     Dosage: 5 MG QD PO
     Route: 048
     Dates: start: 20040402
  2. EXELON [Concomitant]
  3. CAPTOPRIL [Concomitant]
  4. PAROXETINE HCL [Concomitant]
  5. ALDACTAZINE [Concomitant]

REACTIONS (4)
  - ABASIA [None]
  - APATHY [None]
  - DYSPNOEA [None]
  - PARKINSON'S DISEASE [None]
